FAERS Safety Report 15267596 (Version 1)
Quarter: 2018Q3

REPORT INFORMATION
  Report Type: Spontaneous
  Country: US (occurrence: US)
  Receive Date: 20180811
  Receipt Date: 20180811
  Transmission Date: 20181010
  Serious: No
  Sender: FDA-Public Use
  Company Number: US-JNJFOC-20180739141

PATIENT
  Sex: Female
  Weight: 56.7 kg

DRUGS (1)
  1. SANDOZ [Suspect]
     Active Substance: UNSPECIFIED INGREDIENT
     Indication: INTERVERTEBRAL DISC DEGENERATION
     Dosage: EVERY 48 HOURS
     Route: 062

REACTIONS (2)
  - Application site reaction [Unknown]
  - Application site exfoliation [Unknown]
